FAERS Safety Report 9562264 (Version 2)
Quarter: 2013Q4

REPORT INFORMATION
  Report Type: Spontaneous
  Country: US (occurrence: US)
  Receive Date: 20130927
  Receipt Date: 20131001
  Transmission Date: 20140711
  Serious: Yes (Hospitalization)
  Sender: FDA-Public Use
  Company Number: US-BAYER-2013-117046

PATIENT
  Age: 66 Year
  Sex: Male
  Weight: 102 kg

DRUGS (3)
  1. BAYER EXTRA STRENGTH ASPIRIN [Suspect]
     Indication: ANALGESIC THERAPY
     Dosage: 2 DF, Q4HR
     Route: 048
     Dates: start: 20130828, end: 20130831
  2. BAYER EXTRA STRENGTH ASPIRIN [Suspect]
     Indication: RENAL COLIC
  3. SIMVASTATIN [Concomitant]

REACTIONS (4)
  - Tinnitus [Not Recovered/Not Resolved]
  - Vomiting [Recovered/Resolved]
  - Drug ineffective [None]
  - Extra dose administered [None]
